FAERS Safety Report 8102485-6 (Version None)
Quarter: 2012Q1

REPORT INFORMATION
  Report Type: 
  Country: None (occurrence: None)
  Receive Date: 20120201
  Receipt Date: 20120120
  Transmission Date: 20120608
  Serious: Yes (Hospitalization)
  Sender: FDA-Public Use
  Company Number: US-ELI_LILLY_AND_COMPANY-US201110004760

PATIENT
  Sex: Female

DRUGS (9)
  1. CYMBALTA [Suspect]
     Indication: DEPRESSION
     Dosage: 120 MG, EACH EVENING
     Dates: start: 20100101
  2. CLONIDINE [Concomitant]
  3. FORTEO [Suspect]
     Dosage: 20 UG, QD
  4. PROZAC [Concomitant]
     Dosage: 20 MG, UNK
  5. TRAZODONE HCL [Concomitant]
  6. SAVELLA [Concomitant]
  7. CLONAZEPAM [Concomitant]
  8. FORTEO [Suspect]
     Indication: OSTEOPOROSIS
     Dosage: 20 UG, QD
     Dates: start: 20100623
  9. NAPROXEN [Concomitant]
     Indication: RHEUMATOID ARTHRITIS

REACTIONS (4)
  - MENTAL DISORDER [None]
  - DRUG DOSE OMISSION [None]
  - DRUG INEFFECTIVE [None]
  - CRYING [None]
